FAERS Safety Report 23193875 (Version 1)
Quarter: 2023Q4

REPORT INFORMATION
  Report Type: Spontaneous
  Country: US (occurrence: US)
  Receive Date: 20231116
  Receipt Date: 20231116
  Transmission Date: 20240110
  Serious: No
  Sender: FDA-Public Use
  Company Number: US-SANDOZ-SDZ2023US054576

PATIENT
  Sex: Male

DRUGS (1)
  1. CLOFAZIMINE [Suspect]
     Active Substance: CLOFAZIMINE
     Indication: Atypical mycobacterial lower respiratory tract infection
     Dosage: 100 MG, QD
     Route: 065

REACTIONS (1)
  - Drug ineffective for unapproved indication [Unknown]
